FAERS Safety Report 13917866 (Version 1)
Quarter: 2017Q3

REPORT INFORMATION
  Report Type: Spontaneous
  Country: FR (occurrence: FR)
  Receive Date: 20170829
  Receipt Date: 20170829
  Transmission Date: 20171127
  Serious: Yes (Hospitalization)
  Sender: FDA-Public Use
  Company Number: FR-MYLANLABS-2017M1053250

PATIENT
  Age: 10 Year
  Sex: Female
  Weight: 25 kg

DRUGS (11)
  1. VANCOMYCIN MYLAN [Suspect]
     Active Substance: VANCOMYCIN
     Indication: PYREXIA
     Dosage: 1250 MG (625 MG, 2 IN 1 DAY(S))
     Route: 042
     Dates: start: 20170718, end: 20170804
  2. BACTRIM [Suspect]
     Active Substance: SULFAMETHOXAZOLE\TRIMETHOPRIM
     Indication: PROPHYLAXIS
     Dosage: 0.8571 DF ( 2 DF, 3 IN 1 WEEK(S))
     Route: 048
     Dates: start: 20170729, end: 20170807
  3. NUROFENPRO [Suspect]
     Active Substance: IBUPROFEN
     Indication: PYREXIA
     Dosage: 250 MG, TID
     Route: 048
     Dates: start: 20170731, end: 20170804
  4. GENTAMYCINE [Suspect]
     Active Substance: GENTAMICIN
     Indication: PYREXIA
     Dosage: 125 MG, QD
     Route: 042
     Dates: start: 20170718, end: 20170804
  5. AMBISOME [Suspect]
     Active Substance: AMPHOTERICIN B
     Indication: PYREXIA
     Dosage: 75 MG, QD
     Route: 042
     Dates: start: 20170726, end: 20170804
  6. KARDEGIC [Concomitant]
     Active Substance: ASPIRIN LYSINE
     Indication: CARDIAC OPERATION
     Dosage: UNK
     Route: 048
  7. PARACETAMOL [Concomitant]
     Active Substance: ACETAMINOPHEN
     Indication: PYREXIA
     Dosage: UNK
  8. LASILIX                            /00032601/ [Suspect]
     Active Substance: FUROSEMIDE
     Indication: PROPHYLAXIS
     Dosage: 25 MG, QD
     Route: 048
     Dates: start: 20170717, end: 20170804
  9. FERROSTRANE [Suspect]
     Active Substance: SODIUM FEREDETATE
     Indication: MICROCYTIC ANAEMIA
     Dosage: 0.5 DF, QD
     Route: 048
     Dates: start: 20170720, end: 20170807
  10. ZOPHREN                            /00955301/ [Suspect]
     Active Substance: ONDANSETRON
     Indication: VOMITING
     Dosage: 5 INTAKES (1 DF, 1 IN 1 ON REQUEST)
     Dates: start: 20170722, end: 20170806
  11. PRIVIGEN [Suspect]
     Active Substance: HUMAN IMMUNOGLOBULIN G
     Indication: IMMUNOSUPPRESSION
     Dosage: 3 DF (1 DF, 3 IN 1 CYCLE)
     Dates: start: 20170722, end: 20170724

REACTIONS (3)
  - Rash [Not Recovered/Not Resolved]
  - Pyrexia [Recovering/Resolving]
  - Lymphadenopathy [Unknown]

NARRATIVE: CASE EVENT DATE: 20170805
